FAERS Safety Report 17693682 (Version 1)
Quarter: 2020Q2

REPORT INFORMATION
  Report Type: Spontaneous
  Country: TW (occurrence: TW)
  Receive Date: 20200422
  Receipt Date: 20200422
  Transmission Date: 20200714
  Serious: Yes (Other)
  Sender: FDA-Public Use
  Company Number: TW-MACLEODS PHARMACEUTICALS US LTD-MAC2020026232

PATIENT

DRUGS (6)
  1. ROPIVACAINE HYDROCHLORIDE. [Suspect]
     Active Substance: ROPIVACAINE HYDROCHLORIDE
     Indication: ANALGESIC THERAPY
     Dosage: 8 MILLILITER, 1.6 MG/ML
     Route: 008
  2. BUPIVACAINE. [Suspect]
     Active Substance: BUPIVACAINE
     Indication: LOCAL ANAESTHESIA
     Dosage: 15 MILLIGRAM, BD SPINAL NEEDLE, 26 GX 3 1/2 IN. AT L4-5, ISOBARIC 0.5 %
     Route: 037
  3. EPINEPHRINE. [Suspect]
     Active Substance: EPINEPHRINE
     Indication: LOCAL ANAESTHESIA
     Dosage: UNK, 5 ?G/ML
     Route: 008
  4. FENTANYL. [Suspect]
     Active Substance: FENTANYL
     Indication: ANALGESIC THERAPY
     Dosage: UNK, 1.0 ?G/ML
     Route: 008
  5. FENTANYL. [Suspect]
     Active Substance: FENTANYL
     Dosage: 2 MILLILITER/HOUR
     Route: 008
  6. LIDOCAINE. [Suspect]
     Active Substance: LIDOCAINE
     Indication: LOCAL ANAESTHESIA
     Dosage: 3 MILLILITER, 2% OF 20 MG/ML, INJECTION
     Route: 008

REACTIONS (2)
  - Neurotoxicity [Recovered/Resolved]
  - Cauda equina syndrome [Recovered/Resolved]
